FAERS Safety Report 24143998 (Version 2)
Quarter: 2024Q3

REPORT INFORMATION
  Report Type: Spontaneous
  Country: US (occurrence: US)
  Receive Date: 20240727
  Receipt Date: 20240807
  Transmission Date: 20241016
  Serious: No
  Sender: ABBVIE
  Company Number: US-ABBVIE-5855360

PATIENT
  Age: 57 Year
  Sex: Female
  Weight: 63 kg

DRUGS (13)
  1. FETZIMA [Suspect]
     Active Substance: LEVOMILNACIPRAN HYDROCHLORIDE
     Indication: Product used for unknown indication
     Dosage: STRENGTH: 120MG
     Route: 048
     Dates: start: 202312, end: 202401
  2. FETZIMA [Suspect]
     Active Substance: LEVOMILNACIPRAN HYDROCHLORIDE
     Indication: Product used for unknown indication
     Dosage: STRENGTH: 120MG
     Route: 048
     Dates: start: 202406
  3. FETZIMA [Suspect]
     Active Substance: LEVOMILNACIPRAN HYDROCHLORIDE
     Indication: Product used for unknown indication
     Dosage: STRENGTH: 120MG
     Route: 048
     Dates: start: 20240724
  4. MELATONIN [Concomitant]
     Active Substance: MELATONIN
     Indication: Sleep disorder
     Dosage: STRENGTH: 10 MG
     Route: 065
  5. FISH OIL\OMEGA-3 FATTY ACIDS [Concomitant]
     Active Substance: FISH OIL\OMEGA-3 FATTY ACIDS
     Indication: Nutritional supplementation
  6. METHOCARBAMOL [Concomitant]
     Active Substance: METHOCARBAMOL
     Indication: Muscle relaxant therapy
  7. MAGNESIUM [Concomitant]
     Active Substance: MAGNESIUM
     Indication: Mineral supplementation
  8. NORTRIPTYLINE [Concomitant]
     Active Substance: NORTRIPTYLINE
     Indication: Neuralgia
  9. PREGABALIN [Concomitant]
     Active Substance: PREGABALIN
     Indication: Neuralgia
  10. VITAMIN D [Concomitant]
     Active Substance: VITAMIN D NOS
     Indication: Vitamin supplementation
  11. CALCIUM [Concomitant]
     Active Substance: CALCIUM
     Indication: Mineral supplementation
  12. CETIRIZINE [Concomitant]
     Active Substance: CETIRIZINE HYDROCHLORIDE
     Indication: Multiple allergies
  13. IRON [Concomitant]
     Active Substance: IRON
     Indication: Mineral supplementation

REACTIONS (8)
  - Abdominal distension [Recovered/Resolved]
  - Epistaxis [Recovered/Resolved]
  - Abdominal distension [Recovered/Resolved]
  - Dry skin [Recovered/Resolved]
  - Epistaxis [Recovered/Resolved]
  - Constipation [Recovered/Resolved]
  - Constipation [Recovered/Resolved]
  - Dry skin [Recovered/Resolved]

NARRATIVE: CASE EVENT DATE: 20231201
